FAERS Safety Report 4935065-1 (Version None)
Quarter: 2006Q1

REPORT INFORMATION
  Report Type: 
  Country: None (occurrence: None)
  Receive Date: 20060302
  Receipt Date: 20060216
  Transmission Date: 20060701
  Serious: Yes (Death)
  Sender: FDA-Public Use
  Company Number: US200602003597

PATIENT
  Age: 58 Year
  Sex: Female

DRUGS (2)
  1. HUMULIN R [Suspect]
     Indication: DIABETES MELLITUS
  2. HUMULIN N [Suspect]
     Indication: DIABETES MELLITUS

REACTIONS (3)
  - CARDIAC DISORDER [None]
  - POOR QUALITY DRUG ADMINISTERED [None]
  - TREATMENT NONCOMPLIANCE [None]
